FAERS Safety Report 11174596 (Version 2)
Quarter: 2015Q3

REPORT INFORMATION
  Report Type: Spontaneous
  Country: US (occurrence: US)
  Receive Date: 20150609
  Receipt Date: 20150909
  Transmission Date: 20151125
  Serious: Yes (Other)
  Sender: FDA-Public Use
  Company Number: US-UCBSA-2015013295

PATIENT
  Age: 38 Year
  Sex: Female
  Weight: 54.4 kg

DRUGS (2)
  1. CIMZIA [Suspect]
     Active Substance: CERTOLIZUMAB PEGOL
     Indication: RHEUMATOID ARTHRITIS
     Dosage: 200 MG, SOLUTION FOR INJECTION IN PRE-FILLED SOLUTION
     Dates: start: 2014
  2. ORENCIA [Concomitant]
     Active Substance: ABATACEPT
     Indication: PRODUCT USED FOR UNKNOWN INDICATION

REACTIONS (4)
  - Premature delivery [Recovered/Resolved]
  - Suppressed lactation [Unknown]
  - Pregnancy [Unknown]
  - Breast feeding [Unknown]

NARRATIVE: CASE EVENT DATE: 2014
